FAERS Safety Report 9385536 (Version 1)
Quarter: 2013Q3

REPORT INFORMATION
  Report Type: Spontaneous
  Country: DE (occurrence: None)
  Receive Date: 20130701
  Receipt Date: 20130701
  Transmission Date: 20140515
  Serious: Yes (Hospitalization)
  Sender: FDA-Public Use
  Company Number: GER/GER/13/0030226

PATIENT
  Age: 66 Year
  Sex: Female

DRUGS (2)
  1. IBUPROFEN (IBUPROFEN) [Suspect]
     Indication: PRODUCT USED FOR UNKNOWN INDICATION
  2. KATADOLON [Suspect]
     Indication: PAIN
     Dates: start: 201211, end: 201304

REACTIONS (5)
  - Hepatitis cholestatic [None]
  - Somnolence [None]
  - Weight decreased [None]
  - Abdominal pain upper [None]
  - Eructation [None]
